FAERS Safety Report 24059606 (Version 1)
Quarter: 2024Q3

REPORT INFORMATION
  Report Type: Spontaneous
  Country: US (occurrence: US)
  Receive Date: 20240708
  Receipt Date: 20240708
  Transmission Date: 20241016
  Serious: Yes (Life-Threatening, Hospitalization)
  Sender: MYLAN
  Company Number: US-MYLANLABS-2024M1059283

PATIENT
  Age: 66 Year
  Sex: Male

DRUGS (3)
  1. APIXABAN [Suspect]
     Active Substance: APIXABAN
     Indication: Atrial fibrillation
     Dosage: UNK
     Route: 065
  2. HEPARIN [Suspect]
     Active Substance: HEPARIN SODIUM
     Indication: Anticoagulant therapy
     Dosage: UNK (INFUSION)
     Route: 065
  3. FUROSEMIDE [Concomitant]
     Active Substance: FUROSEMIDE
     Indication: Heart failure with reduced ejection fraction
     Dosage: UNK
     Route: 065

REACTIONS (5)
  - Pulmonary haematoma [Recovered/Resolved]
  - Hypoxia [Recovering/Resolving]
  - Haemoglobin decreased [Recovering/Resolving]
  - Azotaemia [Recovering/Resolving]
  - Drug ineffective [Unknown]
